FAERS Safety Report 8545686 (Version 6)
Quarter: 2014Q2

REPORT INFORMATION
  Report Type: Spontaneous
  Country: US (occurrence: US)
  Receive Date: 20120503
  Receipt Date: 20140519
  Transmission Date: 20141212
  Serious: Yes (Hospitalization, Other)
  Sender: FDA-Public Use
  Company Number: US-MERCK-1204USA04579

PATIENT
  Sex: Female

DRUGS (7)
  1. FOSAMAX [Suspect]
     Dosage: 10 MG, QD
     Route: 048
     Dates: start: 19981021, end: 20001009
  2. FOSAMAX [Suspect]
     Dosage: 70 MG, QW
     Route: 048
     Dates: start: 200106, end: 20020108
  3. FOSAMAX [Suspect]
     Dosage: 70 MG, QW
     Route: 048
     Dates: start: 20070625, end: 200709
  4. FOSAMAX [Suspect]
     Dosage: UNK
     Route: 048
     Dates: start: 2007, end: 200804
  5. BONIVA [Suspect]
     Dates: start: 200709, end: 200808
  6. THYROID [Concomitant]
  7. ACTONEL [Suspect]
     Dosage: UNK
     Dates: start: 200706, end: 200805

REACTIONS (10)
  - Femur fracture [Recovered/Resolved]
  - Intramedullary rod insertion [Unknown]
  - Fall [Recovered/Resolved]
  - Fracture nonunion [Recovered/Resolved with Sequelae]
  - Device breakage [Recovered/Resolved]
  - Medical device removal [Unknown]
  - Intramedullary rod insertion [Unknown]
  - Spinal fracture [Unknown]
  - Limb discomfort [Unknown]
  - Back pain [Unknown]
